FAERS Safety Report 14293179 (Version 2)
Quarter: 2024Q2

REPORT INFORMATION
  Report Type: Report from Study
  Country: BE (occurrence: BE)
  Receive Date: 20171215
  Receipt Date: 20240419
  Transmission Date: 20240716
  Serious: Yes (Hospitalization)
  Sender: FDA-Public Use
  Company Number: BE-ABBVIE-17P-013-2190051-00

PATIENT
  Age: 61 Year
  Sex: Female

DRUGS (24)
  1. HUMIRA [Suspect]
     Active Substance: ADALIMUMAB
     Indication: Colitis ulcerative
     Route: 058
     Dates: start: 20140604, end: 20160101
  2. HUMIRA [Suspect]
     Active Substance: ADALIMUMAB
     Route: 058
     Dates: start: 20160122, end: 20160129
  3. HUMIRA [Suspect]
     Active Substance: ADALIMUMAB
     Route: 058
     Dates: start: 20160212, end: 20160226
  4. HUMIRA [Suspect]
     Active Substance: ADALIMUMAB
     Route: 058
     Dates: start: 20160304, end: 201604
  5. HUMIRA [Suspect]
     Active Substance: ADALIMUMAB
     Route: 058
     Dates: start: 201604
  6. SYMBICORT [Concomitant]
     Active Substance: BUDESONIDE\FORMOTEROL FUMARATE DIHYDRATE
     Indication: Asthma
     Dosage: 1 OTHER UNIT
     Route: 055
     Dates: start: 20080308
  7. FLUPENTIXOL DIHYDROCHLORIDE\MELITRACEN HYDROCHLORIDE [Concomitant]
     Active Substance: FLUPENTIXOL DIHYDROCHLORIDE\MELITRACEN HYDROCHLORIDE
     Indication: Stress
     Dosage: AS REQ
     Route: 048
     Dates: start: 200905, end: 2017
  8. MEDROL [Concomitant]
     Active Substance: METHYLPREDNISOLONE
     Indication: Bronchitis
     Route: 048
     Dates: start: 201408, end: 201408
  9. MEDROL [Concomitant]
     Active Substance: METHYLPREDNISOLONE
     Indication: Bronchitis
     Route: 048
     Dates: start: 20160706, end: 20160707
  10. MEDROL [Concomitant]
     Active Substance: METHYLPREDNISOLONE
     Indication: Bronchitis
     Route: 048
     Dates: start: 20160708, end: 20160709
  11. MEDROL [Concomitant]
     Active Substance: METHYLPREDNISOLONE
     Indication: Bronchitis
     Route: 048
     Dates: start: 20160710, end: 20160711
  12. MEDROL [Concomitant]
     Active Substance: METHYLPREDNISOLONE
     Indication: Bronchitis
     Route: 048
     Dates: start: 20160712, end: 20160712
  13. MEDROL [Concomitant]
     Active Substance: METHYLPREDNISOLONE
     Indication: Bronchitis
     Route: 048
     Dates: start: 20160713, end: 20160713
  14. MEDROL [Concomitant]
     Active Substance: METHYLPREDNISOLONE
     Indication: Bronchitis
     Route: 048
     Dates: start: 20160714, end: 20160714
  15. MEDROL [Concomitant]
     Active Substance: METHYLPREDNISOLONE
     Indication: Bronchitis
     Route: 048
     Dates: start: 20161211, end: 2017
  16. SODIUM BICARBONATE [Concomitant]
     Active Substance: SODIUM BICARBONATE
     Indication: Renal failure
     Route: 048
     Dates: start: 20141118
  17. PANTOPRAZOLE [Concomitant]
     Active Substance: PANTOPRAZOLE
     Indication: Abdominal discomfort
     Dosage: AS REQ
     Route: 048
     Dates: start: 2016
  18. ALLOPURINOL [Concomitant]
     Active Substance: ALLOPURINOL
     Indication: Arthritis
     Route: 048
     Dates: start: 20161211
  19. MAGNESIUM [Concomitant]
     Active Substance: MAGNESIUM
     Indication: Muscle spasms
     Dosage: AS REQ
     Route: 048
     Dates: start: 20160721
  20. 1 alpha leo [Concomitant]
     Indication: Nephropathy
     Route: 048
     Dates: start: 20160915, end: 20161115
  21. 1 alpha leo [Concomitant]
     Indication: Nephropathy
     Route: 048
     Dates: start: 20161116
  22. ACETAMINOPHEN [Concomitant]
     Active Substance: ACETAMINOPHEN
     Indication: Headache
     Route: 048
     Dates: start: 20170116, end: 20170116
  23. SPIRIVA [Concomitant]
     Active Substance: TIOTROPIUM BROMIDE MONOHYDRATE
     Indication: Asthma
     Route: 055
     Dates: start: 2017
  24. OMEPRAZOLE [Concomitant]
     Active Substance: OMEPRAZOLE
     Indication: Prophylaxis
     Route: 048
     Dates: start: 20050126

REACTIONS (1)
  - Dumping syndrome [Recovered/Resolved]

NARRATIVE: CASE EVENT DATE: 20170116
